FAERS Safety Report 10255686 (Version 2)
Quarter: 2014Q3

REPORT INFORMATION
  Report Type: Spontaneous
  Country: GR (occurrence: GR)
  Receive Date: 20140624
  Receipt Date: 20140923
  Transmission Date: 20150326
  Serious: Yes (Hospitalization)
  Sender: FDA-Public Use
  Company Number: GR-VERTEX PHARMACEUTICALS INC-2014-002818

PATIENT
  Sex: Male

DRUGS (3)
  1. PEGYLATED INTERFERON ALPHA NOS [Concomitant]
     Active Substance: PEGINTERFERON ALFA-2A OR PEGINTERFERON ALFA-2B
     Indication: HEPATITIS C
     Route: 065
  2. RIBAVIRIN. [Concomitant]
     Active Substance: RIBAVIRIN
     Indication: HEPATITIS C
     Route: 065
  3. INCIVO [Suspect]
     Active Substance: TELAPREVIR
     Indication: HEPATITIS C
     Dosage: 750 MG, TID
     Route: 048

REACTIONS (1)
  - Rash [Recovered/Resolved]
